FAERS Safety Report 4300519-8 (Version None)
Quarter: 2004Q1

REPORT INFORMATION
  Report Type: 
  Country: None (occurrence: None)
  Receive Date: 20040218
  Receipt Date: 20040211
  Transmission Date: 20041129
  Serious: Yes (Hospitalization)
  Sender: FDA-Public Use
  Company Number: STA-AE-04-MTX-056

PATIENT
  Age: 53 Year
  Sex: Female

DRUGS (2)
  1. METHOTREXATE [Suspect]
     Indication: RHEUMATOID ARTHRITIS
     Dosage: 15 MG 1X PER1 WK, ORAL
     Route: 048
  2. HUMIRA [Suspect]
     Indication: RHEUMATOID ARTHRITIS
     Dosage: 40 MG 1X PER 2 MTH, SC
     Route: 058
     Dates: start: 20030610

REACTIONS (5)
  - EAR PAIN [None]
  - HAEMATURIA [None]
  - INJECTION SITE REACTION [None]
  - KERATOCONJUNCTIVITIS SICCA [None]
  - WHITE BLOOD CELLS URINE POSITIVE [None]
